FAERS Safety Report 4343841-1 (Version None)
Quarter: 2004Q2

REPORT INFORMATION
  Report Type: 
  Country: None (occurrence: None)
  Receive Date: 20040419
  Receipt Date: 20040405
  Transmission Date: 20050107
  Serious: Yes (Hospitalization)
  Sender: FDA-Public Use
  Company Number: FR-JNJFOC-20040400912

PATIENT
  Age: 20 Year
  Sex: Female

DRUGS (4)
  1. RISPERDAL [Suspect]
     Indication: ADVERSE EVENT
     Dosage: 2 MG, 1 IN 1 DAY, ORAL; SEE IMAGE
     Route: 048
     Dates: start: 20040313
  2. MIANSERINE (MIANSERIN) [Suspect]
     Indication: ADVERSE EVENT
     Dosage: 20 MG, 1 IN 1 DAY, ORAL
     Route: 048
  3. STILNOX (ZOLPIDEM) [Suspect]
     Indication: ADVERSE EVENT
     Dosage: 10 MG, 1 IN 1 DAY, ORAL
     Route: 048
  4. ZOLOFT [Suspect]
     Indication: ADVERSE EVENT
     Dosage: 50 MG, 2 IN 1 DAY, ORAL
     Route: 048

REACTIONS (4)
  - DRUG INTERACTION [None]
  - OEDEMA PERIPHERAL [None]
  - PERICARDIAL EFFUSION [None]
  - VOMITING [None]
